FAERS Safety Report 10161389 (Version 2)
Quarter: 2014Q2

REPORT INFORMATION
  Report Type: Report from Study
  Country: BR (occurrence: BR)
  Receive Date: 20140509
  Receipt Date: 20140616
  Transmission Date: 20141212
  Serious: Yes (Hospitalization)
  Sender: FDA-Public Use
  Company Number: BR-ROCHE-1397506

PATIENT
  Sex: Female
  Weight: 88 kg

DRUGS (13)
  1. ACTEMRA [Suspect]
     Indication: RHEUMATOID ARTHRITIS
     Route: 042
     Dates: start: 20100601, end: 20100801
  2. ACTEMRA [Suspect]
     Route: 065
     Dates: start: 20100901, end: 20101001
  3. ACTEMRA [Suspect]
     Route: 065
     Dates: start: 20110301, end: 20110401
  4. ACTEMRA [Suspect]
     Route: 065
     Dates: start: 20110711, end: 20140201
  5. SERTRALINE [Concomitant]
  6. PROMENSIL [Concomitant]
  7. RIVOTRIL [Concomitant]
     Route: 065
  8. HYDROCHLOROTHIAZIDE [Concomitant]
  9. CLOMIPRAMINE HYDROCHLORIDE [Concomitant]
  10. PROPRANOLOL [Concomitant]
  11. SIMVASTATIN [Concomitant]
  12. OMEPRAZOLE [Concomitant]
  13. GLIFAGE [Concomitant]

REACTIONS (3)
  - Haemorrhoids [Recovering/Resolving]
  - Liver disorder [Unknown]
  - Hepatic neoplasm [Recovered/Resolved]
